FAERS Safety Report 18400784 (Version 1)
Quarter: 2020Q4

REPORT INFORMATION
  Report Type: Spontaneous
  Country: US (occurrence: US)
  Receive Date: 20201019
  Receipt Date: 20201019
  Transmission Date: 20210114
  Serious: No
  Sender: FDA-Public Use
  Company Number: US-AMGEN-USASP2020166367

PATIENT
  Age: 17 Year
  Sex: Male

DRUGS (6)
  1. CALCIUM [Concomitant]
     Active Substance: CALCIUM
     Dosage: 500 MILLIGRAM, TID
  2. CALCITRIOL. [Concomitant]
     Active Substance: CALCITRIOL
     Indication: HYPOCALCAEMIA
     Dosage: 0.25 MILLIGRAM, QD
  3. PROLIA [Suspect]
     Active Substance: DENOSUMAB
     Indication: NOONAN SYNDROME
     Dosage: 60 MILLIGRAM, QWK
     Route: 065
     Dates: start: 201607, end: 201808
  4. PROLIA [Suspect]
     Active Substance: DENOSUMAB
     Dosage: 60 MILLIGRAM, Q2WK
     Route: 065
  5. PROLIA [Suspect]
     Active Substance: DENOSUMAB
     Dosage: 60 MILLIGRAM, Q3MO
     Route: 065
  6. PROLIA [Suspect]
     Active Substance: DENOSUMAB
     Dosage: 60 MILLIGRAM, Q4WK
     Route: 065

REACTIONS (6)
  - Hypercalcaemia [Recovered/Resolved]
  - Hypocalcaemia [Recovered/Resolved]
  - Blood parathyroid hormone increased [Unknown]
  - Rebound effect [Unknown]
  - Off label use [Unknown]
  - Tooth loss [Unknown]

NARRATIVE: CASE EVENT DATE: 201607
